FAERS Safety Report 6008193-X (Version None)
Quarter: 2008Q4

REPORT INFORMATION
  Report Type: 
  Country: None (occurrence: None)
  Receive Date: 20081217
  Receipt Date: 20080721
  Transmission Date: 20090506
  Serious: No
  Sender: FDA-Public Use
  Company Number: US-ASTRAZENECA-2008UW15217

PATIENT
  Age: 66 Year
  Sex: Male

DRUGS (6)
  1. CRESTOR [Suspect]
     Route: 048
     Dates: start: 20080601
  2. COZAAR [Concomitant]
  3. ASPIRIN [Concomitant]
  4. FLAXSEED OIL [Concomitant]
  5. FISH OIL [Concomitant]
  6. COQ10 [Concomitant]

REACTIONS (1)
  - ALOPECIA [None]
